FAERS Safety Report 9600652 (Version 1)
Quarter: 2013Q4

REPORT INFORMATION
  Report Type: Spontaneous
  Country: US (occurrence: US)
  Receive Date: 20131004
  Receipt Date: 20131004
  Transmission Date: 20140711
  Serious: No
  Sender: FDA-Public Use
  Company Number: US-AMGEN-USASP2013037120

PATIENT
  Age: 58 Year
  Sex: Male
  Weight: 90.7 kg

DRUGS (3)
  1. ENBREL [Suspect]
     Indication: PRODUCT USED FOR UNKNOWN INDICATION
     Dosage: 50 MG, 2 TIMES/WK
     Route: 058
     Dates: start: 20120802, end: 20121208
  2. GABAPENTIN [Concomitant]
     Dosage: 100 MG, UNK
  3. ASA [Concomitant]
     Dosage: FREE CHW,160 MG, JR UNK

REACTIONS (1)
  - Drug effect incomplete [Unknown]
